FAERS Safety Report 4344848-0 (Version None)
Quarter: 2004Q2

REPORT INFORMATION
  Report Type: 
  Country: None (occurrence: None)
  Receive Date: 20040423
  Receipt Date: 20040416
  Transmission Date: 20050107
  Serious: Yes (Hospitalization, Other)
  Sender: FDA-Public Use
  Company Number: FR-BRISTOL-MYERS SQUIBB COMPANY-12562385

PATIENT
  Age: 48 Year
  Sex: Male

DRUGS (1)
  1. VASTEN [Suspect]
     Indication: HYPERCHOLESTEROLAEMIA
     Route: 048
     Dates: start: 20030701, end: 20040318

REACTIONS (3)
  - ASTHENIA [None]
  - HEPATOCELLULAR DAMAGE [None]
  - PYREXIA [None]
